FAERS Safety Report 14896058 (Version 1)
Quarter: 2018Q2

REPORT INFORMATION
  Report Type: Spontaneous
  Country: US (occurrence: US)
  Receive Date: 20180515
  Receipt Date: 20180515
  Transmission Date: 20180711
  Serious: Yes (Life-Threatening, Other)
  Sender: FDA-Public Use
  Company Number: US-MYLANLABS-2015M1014780

PATIENT
  Sex: Female

DRUGS (1)
  1. LEVOTHYROXINE. [Suspect]
     Active Substance: LEVOTHYROXINE
     Indication: PRODUCT USED FOR UNKNOWN INDICATION
     Dosage: 100 ?G, QD
     Route: 048
     Dates: end: 20150406

REACTIONS (3)
  - Dysphagia [Recovered/Resolved]
  - Choking [Recovered/Resolved]
  - Pharyngeal oedema [Recovered/Resolved]

NARRATIVE: CASE EVENT DATE: 2011
